FAERS Safety Report 16453758 (Version 4)
Quarter: 2019Q3

REPORT INFORMATION
  Report Type: Spontaneous
  Country: SE (occurrence: SE)
  Receive Date: 20190619
  Receipt Date: 20190906
  Transmission Date: 20191004
  Serious: Yes (Other)
  Sender: FDA-Public Use
  Company Number: SE-009507513-1906SWE003433

PATIENT
  Age: 27 Year
  Sex: Female

DRUGS (1)
  1. NEXPLANON [Suspect]
     Active Substance: ETONOGESTREL
     Indication: CONTRACEPTION
     Dosage: UNK
     Dates: start: 20180222, end: 20181016

REACTIONS (4)
  - Drug ineffective [Recovered/Resolved]
  - Pregnancy with implant contraceptive [Recovered/Resolved]
  - Maternal exposure during pregnancy [Recovered/Resolved]
  - Stillbirth [Recovered/Resolved]

NARRATIVE: CASE EVENT DATE: 201802
